FAERS Safety Report 4854306-2 (Version None)
Quarter: 2005Q4

REPORT INFORMATION
  Report Type: 
  Country: None (occurrence: None)
  Receive Date: 20051215
  Receipt Date: 20051207
  Transmission Date: 20060501
  Serious: Yes (Other)
  Sender: FDA-Public Use
  Company Number: US-KINGPHARMUSA00001-K200501563

PATIENT
  Age: 36 Year
  Sex: Female

DRUGS (7)
  1. ALTACE [Suspect]
     Dosage: UNK, QD
     Route: 048
  2. DILANTIN  /CAN/ [Suspect]
     Dosage: 300 MG, QD
     Route: 048
  3. BACLOFEN [Concomitant]
     Dosage: 300 MG, UNK
  4. IBUPROFEN [Concomitant]
     Dosage: UNK, PRN
     Route: 048
  5. INTERFERON BETA [Concomitant]
     Dosage: UNK, QD
     Route: 058
  6. MAXALT  /NET/ [Concomitant]
     Dosage: UNK, PRN
     Route: 048
  7. METOPROLOL [Concomitant]
     Dosage: 100 MG, UNK
     Route: 048

REACTIONS (11)
  - ABDOMINAL PAIN [None]
  - ASTHENIA [None]
  - BLOOD PRESSURE INCREASED [None]
  - CONVULSION [None]
  - COORDINATION ABNORMAL [None]
  - DIPLOPIA [None]
  - DRUG INTERACTION [None]
  - DRUG LEVEL INCREASED [None]
  - MULTIPLE SCLEROSIS [None]
  - OVARIAN CYST [None]
  - PARAESTHESIA [None]
